FAERS Safety Report 8300449-0 (Version None)
Quarter: 2012Q2

REPORT INFORMATION
  Report Type: 
  Country: None (occurrence: None)
  Receive Date: 20120417
  Receipt Date: 20120331
  Transmission Date: 20120825
  Serious: Yes (Death, Hospitalization, Other)
  Sender: FDA-Public Use
  Company Number: 2012-0002

PATIENT
  Age: 82 Year
  Sex: Female

DRUGS (6)
  1. HYDROXYCHLOROQUINE SULFATE [Concomitant]
  2. SODIUM THIOSULFATE [Suspect]
     Indication: CALCIPHYLAXIS
     Dosage: 25 G/2 L DIALYSATE IP
     Dates: start: 20090806
  3. ALLOPURINOL [Concomitant]
  4. CALCITRIOL [Concomitant]
  5. ATENOLOL [Concomitant]
  6. TIOTROPIUM [Concomitant]

REACTIONS (4)
  - GENERAL PHYSICAL HEALTH DETERIORATION [None]
  - CHEMICAL PERITONITIS [None]
  - ABDOMINAL PAIN [None]
  - PERITONEAL CLOUDY EFFLUENT [None]
